FAERS Safety Report 10266172 (Version 4)
Quarter: 2015Q1

REPORT INFORMATION
  Report Type: Spontaneous
  Country: US (occurrence: US)
  Receive Date: 20140627
  Receipt Date: 20150225
  Transmission Date: 20150720
  Serious: Yes (Other)
  Sender: FDA-Public Use
  Company Number: US-ABBVIE-14P-163-1251442-00

PATIENT

DRUGS (1)
  1. CREON [Suspect]
     Active Substance: PANCRELIPASE AMYLASE\PANCRELIPASE LIPASE\PANCRELIPASE PROTEASE
     Indication: PRODUCT USED FOR UNKNOWN INDICATION
     Route: 065

REACTIONS (7)
  - Bile duct stone [Unknown]
  - Hernia [Unknown]
  - Pancreatitis [Unknown]
  - Haematochezia [Unknown]
  - Odynophagia [Unknown]
  - Pancreatic pseudocyst [Unknown]
  - Painful defaecation [Unknown]
